FAERS Safety Report 17457968 (Version 1)
Quarter: 2020Q1

REPORT INFORMATION
  Report Type: Spontaneous
  Country: MY (occurrence: MY)
  Receive Date: 20200225
  Receipt Date: 20200225
  Transmission Date: 20200409
  Serious: Yes (Other)
  Sender: FDA-Public Use
  Company Number: MY-ABBVIE-20K-101-3284480-00

PATIENT
  Sex: Female

DRUGS (1)
  1. LUCRIN [Suspect]
     Active Substance: LEUPROLIDE ACETATE
     Indication: UTERINE LEIOMYOMA
     Route: 065

REACTIONS (4)
  - Hysterectomy [Unknown]
  - Menorrhagia [Unknown]
  - Myomectomy [Unknown]
  - Haemoglobin decreased [Unknown]
